FAERS Safety Report 12178393 (Version 1)
Quarter: 2016Q1

REPORT INFORMATION
  Report Type: Spontaneous
  Country: TR (occurrence: TR)
  Receive Date: 20160315
  Receipt Date: 20160315
  Transmission Date: 20160526
  Serious: Yes (Hospitalization)
  Sender: FDA-Public Use
  Company Number: TR-INVENTIA-000104

PATIENT
  Age: 29 Year
  Sex: Female

DRUGS (3)
  1. LITHIUM. [Suspect]
     Active Substance: LITHIUM
     Indication: BIPOLAR DISORDER
  2. DULOXETINE. [Suspect]
     Active Substance: DULOXETINE
     Indication: BIPOLAR DISORDER
  3. LAMOTRIGINE. [Suspect]
     Active Substance: LAMOTRIGINE
     Indication: BIPOLAR DISORDER
     Dosage: INITIALLY STARTED AT THE DOSE OF 25 MG, THEN DOSE INCREASED TO 50 MG AND FURTHER 75 MG ONCE A DAY.

REACTIONS (1)
  - Toxic epidermal necrolysis [Recovered/Resolved]
